FAERS Safety Report 17219996 (Version 1)
Quarter: 2019Q4

REPORT INFORMATION
  Report Type: Spontaneous
  Country: US (occurrence: US)
  Receive Date: 20191231
  Receipt Date: 20191231
  Transmission Date: 20200122
  Serious: No
  Sender: FDA-Public Use
  Company Number: US-SA-2019SA359125

PATIENT
  Age: 52 Year
  Sex: Male

DRUGS (5)
  1. DUPIXENT [Suspect]
     Active Substance: DUPILUMAB
     Dosage: 300 MG, QOW
     Route: 058
     Dates: start: 20191130
  2. SPIRONOLACTON [Concomitant]
     Active Substance: SPIRONOLACTONE
  3. CETRIZINE [Concomitant]
     Active Substance: CETIRIZINE HYDROCHLORIDE
  4. MONTELUKAST [Concomitant]
     Active Substance: MONTELUKAST SODIUM
  5. CARVEDILOL. [Concomitant]
     Active Substance: CARVEDILOL

REACTIONS (3)
  - Condition aggravated [Not Recovered/Not Resolved]
  - Sleep disorder [Not Recovered/Not Resolved]
  - Rash [Not Recovered/Not Resolved]
